FAERS Safety Report 18488380 (Version 1)
Quarter: 2020Q4

REPORT INFORMATION
  Report Type: Report from Study
  Country: None (occurrence: US)
  Receive Date: 20201110
  Receipt Date: 20201110
  Transmission Date: 20210114
  Serious: Yes (Other)
  Sender: FDA-Public Use
  Company Number: US-ABBVIE-20K-163-3441262-00

PATIENT
  Sex: Male

DRUGS (1)
  1. RINVOQ [Suspect]
     Active Substance: UPADACITINIB
     Indication: RHEUMATOID ARTHRITIS
     Route: 048

REACTIONS (7)
  - Urinary tract infection [Recovered/Resolved]
  - Prostatic operation [Unknown]
  - Bladder disorder [Recovering/Resolving]
  - Rheumatoid arthritis [Unknown]
  - Urinary tract infection [Unknown]
  - Memory impairment [Unknown]
  - Pollakiuria [Unknown]

NARRATIVE: CASE EVENT DATE: 2020
